FAERS Safety Report 15339097 (Version 1)
Quarter: 2018Q3

REPORT INFORMATION
  Report Type: Spontaneous
  Country: US (occurrence: US)
  Receive Date: 20180827
  Receipt Date: 20180827
  Transmission Date: 20181010
  Serious: Yes (Hospitalization)
  Sender: FDA-Public Use
  Company Number: None

PATIENT
  Age: 64 Year
  Sex: Male
  Weight: 75.75 kg

DRUGS (1)
  1. BACLOFEN. [Suspect]
     Active Substance: BACLOFEN
     Indication: MUSCLE SPASTICITY
     Route: 048
     Dates: start: 20180212, end: 20180417

REACTIONS (17)
  - Gastroenteritis [None]
  - Hypochloraemia [None]
  - Metabolic alkalosis [None]
  - Somnolence [None]
  - Vomiting [None]
  - Intentional product use issue [None]
  - Muscle spasticity [None]
  - Hypokalaemia [None]
  - Regurgitation [None]
  - Muscle twitching [None]
  - Nausea [None]
  - Headache [None]
  - Hypophagia [None]
  - Pain [None]
  - Dyspnoea [None]
  - Acute kidney injury [None]
  - Urine output decreased [None]

NARRATIVE: CASE EVENT DATE: 20180417
